FAERS Safety Report 16203010 (Version 1)
Quarter: 2019Q2

REPORT INFORMATION
  Report Type: Spontaneous
  Country: US (occurrence: US)
  Receive Date: 20190416
  Receipt Date: 20190416
  Transmission Date: 20190711
  Serious: Yes (Hospitalization)
  Sender: FDA-Public Use
  Company Number: US-TEVA-2019-US-1038622

PATIENT
  Age: 50 Year
  Sex: Male

DRUGS (1)
  1. CEFDINIR. [Suspect]
     Active Substance: CEFDINIR
     Indication: BETA HAEMOLYTIC STREPTOCOCCAL INFECTION
     Route: 048

REACTIONS (1)
  - Hepatitis cholestatic [Recovered/Resolved]
